FAERS Safety Report 7668849-X (Version None)
Quarter: 2011Q3

REPORT INFORMATION
  Report Type: 
  Country: None (occurrence: None)
  Receive Date: 20110808
  Receipt Date: 20110802
  Transmission Date: 20111222
  Serious: Yes (Other)
  Sender: FDA-Public Use
  Company Number: ES-PFIZER INC-2011145284

PATIENT
  Age: 68 Year
  Sex: Male

DRUGS (4)
  1. DICLOFENAC [Concomitant]
     Indication: BACK PAIN
  2. DIAZEPAM [Concomitant]
  3. OMEPRAZOLE [Concomitant]
     Indication: PROPHYLAXIS AGAINST GASTROINTESTINAL ULCER
  4. PANTOPRAZOLE [Suspect]
     Indication: PROPHYLAXIS AGAINST GASTROINTESTINAL ULCER
     Dosage: UNK

REACTIONS (1)
  - DRUG HYPERSENSITIVITY [None]
